FAERS Safety Report 5991801-7 (Version None)
Quarter: 2008Q4

REPORT INFORMATION
  Report Type: 
  Country: None (occurrence: None)
  Receive Date: 20081202
  Receipt Date: 20080115
  Transmission Date: 20090506
  Serious: Yes (Other)
  Sender: FDA-Public Use
  Company Number: WAES 0707USA02693

PATIENT
  Age: 67 Year
  Sex: Female

DRUGS (3)
  1. FOSAMAX [Suspect]
     Indication: OSTEOPOROSIS
     Dosage: 70 MG/WKY/PO
     Route: 048
     Dates: start: 20021001, end: 20060501
  2. FOSAMAX PLUS D [Suspect]
     Indication: OSTEOPOROSIS
     Dosage: PO
     Route: 048
  3. TRICOR [Concomitant]

REACTIONS (9)
  - EAR PAIN [None]
  - ERYTHEMA [None]
  - EXOSTOSIS [None]
  - GALLBLADDER DISORDER [None]
  - GRAFT DYSFUNCTION [None]
  - IMPLANT SITE DISCHARGE [None]
  - OSTEOMYELITIS [None]
  - OSTEONECROSIS [None]
  - RESORPTION BONE INCREASED [None]
